FAERS Safety Report 21298815 (Version 1)
Quarter: 2022Q3

REPORT INFORMATION
  Report Type: Spontaneous
  Country: US (occurrence: US)
  Receive Date: 20220906
  Receipt Date: 20220906
  Transmission Date: 20221027
  Serious: Yes (Hospitalization, Other)
  Sender: FDA-Public Use
  Company Number: US-SA-SAC20220905000230

PATIENT
  Sex: Female
  Weight: 82.54 kg

DRUGS (1)
  1. DUPIXENT [Suspect]
     Active Substance: DUPILUMAB
     Indication: Dermatitis atopic
     Dosage: 300MG QOW
     Route: 058
     Dates: end: 2022

REACTIONS (6)
  - Pneumonia [Unknown]
  - Magnesium deficiency [Unknown]
  - Calcium deficiency [Unknown]
  - Renal failure [Unknown]
  - Rash erythematous [Unknown]
  - Therapeutic response shortened [Unknown]
